FAERS Safety Report 5062502-7 (Version None)
Quarter: 2006Q3

REPORT INFORMATION
  Report Type: 
  Country: None (occurrence: None)
  Receive Date: 20060726
  Receipt Date: 20060717
  Transmission Date: 20061208
  Serious: Yes (Hospitalization)
  Sender: FDA-Public Use
  Company Number: 2006AC01351

PATIENT
  Sex: Male
  Weight: 74 kg

DRUGS (4)
  1. SEROQUEL [Suspect]
     Indication: SCHIZOPHRENIA
     Dosage: TREAMENT STARTED MAY 12 AND WITHDRAWN JUNE 22 (YEAR NOT INDICATED)
     Route: 048
  2. TRILEPTAL [Concomitant]
     Indication: PSYCHOTIC DISORDER
     Dosage: THERAPY STARTED MAY 12
     Route: 048
  3. IDALPREM [Concomitant]
     Indication: PSYCHOTIC DISORDER
     Dosage: THERAPY STARTED MAY 12
     Route: 048
  4. SINEMET [Concomitant]
     Indication: PARKINSONISM
     Dosage: THERAPY WITH THREE TABLETS A DAY, STARTED ON MAY 12
     Route: 048

REACTIONS (1)
  - HYDROCELE [None]
